FAERS Safety Report 8482346 (Version 3)
Quarter: 2013Q2

REPORT INFORMATION
  Report Type: Report from Study
  Country: JP (occurrence: JP)
  Receive Date: 20120329
  Receipt Date: 20130415
  Transmission Date: 20140414
  Serious: Yes (Death, Life-Threatening, Hospitalization)
  Sender: FDA-Public Use
  Company Number: JP-GENZYME-THYM-1003184

PATIENT
  Age: 41 Year
  Sex: Female
  Weight: 47 kg

DRUGS (8)
  1. THYMOGLOBULIN [Suspect]
     Indication: ACUTE GRAFT VERSUS HOST DISEASE
     Dosage: 175 MG, QD
     Route: 042
     Dates: start: 20120310, end: 20120314
  2. GANCICLOVIR [Suspect]
     Indication: CYTOMEGALOVIRUS TEST POSITIVE
     Dosage: UNK
     Route: 065
     Dates: start: 20120311, end: 20120315
  3. AMINO ACIDS NOS W [Concomitant]
     Indication: HYPOPHAGIA
     Dosage: UNK
     Route: 065
     Dates: start: 20120309, end: 20120316
  4. FENTANYL [Concomitant]
     Indication: GRAFT VERSUS HOST DISEASE
     Dosage: UNK
     Route: 065
     Dates: start: 20120306, end: 20120316
  5. INSULIN [Concomitant]
     Indication: HYPERGLYCAEMIA
     Dosage: UNK
     Route: 065
     Dates: start: 20120306, end: 20120316
  6. PREDNISOLONE [Concomitant]
     Indication: PREMEDICATION
     Dosage: UNK
     Route: 065
     Dates: start: 20120310, end: 20120316
  7. MICAFUNGIN SODIUM [Concomitant]
     Indication: ANTIFUNGAL PROPHYLAXIS
     Dosage: UNK
     Route: 065
     Dates: start: 20120310, end: 20120316
  8. FAMOTIDINE [Concomitant]
     Indication: HAEMORRHAGE PROPHYLAXIS
     Dosage: UNK
     Route: 065
     Dates: start: 20120314, end: 20120315

REACTIONS (7)
  - Cerebral haemorrhage [Fatal]
  - Anaemia [Fatal]
  - Platelet count decreased [Fatal]
  - Pyrexia [Fatal]
  - Leukopenia [Fatal]
  - Neutropenia [Fatal]
  - Cytomegalovirus test positive [Unknown]
